FAERS Safety Report 4761115-1 (Version None)
Quarter: 2005Q3

REPORT INFORMATION
  Report Type: 
  Country: None (occurrence: None)
  Receive Date: 20050901
  Receipt Date: 20050210
  Transmission Date: 20060218
  Serious: Yes (Hospitalization)
  Sender: FDA-Public Use
  Company Number: 2005FR-00239

PATIENT
  Age: 77 Year
  Sex: Male

DRUGS (6)
  1. IBUPROFEN [Suspect]
     Indication: HEADACHE
     Dosage: 2 TABLETS ORAL
     Route: 048
     Dates: start: 20041113, end: 20041114
  2. BENDROFLUAZIDE [Concomitant]
  3. TRAMADOL HCL [Concomitant]
  4. HYDROCORTISONE [Concomitant]
  5. ATENOLOL [Concomitant]
  6. THYROXINE [Concomitant]

REACTIONS (3)
  - BARRETT'S OESOPHAGUS [None]
  - HAEMATEMESIS [None]
  - OESOPHAGITIS [None]
